FAERS Safety Report 9701221 (Version 6)
Quarter: 2015Q3

REPORT INFORMATION
  Report Type: Spontaneous
  Country: US (occurrence: US)
  Receive Date: 20131121
  Receipt Date: 20150901
  Transmission Date: 20151125
  Serious: Yes (Life-Threatening, Hospitalization, Other)
  Sender: FDA-Public Use
  Company Number: US-BAYER-2013-139717

PATIENT
  Age: 35 Year
  Sex: Female
  Weight: 54 kg

DRUGS (5)
  1. SIMVASTATIN. [Concomitant]
     Active Substance: SIMVASTATIN
     Dosage: UNK
     Dates: start: 2009
  2. MIRENA [Suspect]
     Active Substance: LEVONORGESTREL
     Indication: CONTRACEPTION
     Dosage: 20 MCG/24HR, CONT
     Route: 015
     Dates: start: 20080513, end: 20110415
  3. MIRENA [Suspect]
     Active Substance: LEVONORGESTREL
     Indication: CONTRACEPTION
     Dosage: 20 MCG/24HR, CONT
     Route: 015
     Dates: start: 201205, end: 201206
  4. ZOCOR [Concomitant]
     Active Substance: SIMVASTATIN
     Indication: BLOOD CHOLESTEROL INCREASED
     Dosage: UNK
     Dates: start: 2011
  5. AMBIEN [Concomitant]
     Active Substance: ZOLPIDEM TARTRATE
     Indication: INSOMNIA
     Dosage: 10 MG, HALF TABLET
     Dates: start: 2011, end: 2012

REACTIONS (20)
  - Emotional distress [None]
  - Abdominal pain lower [None]
  - Pain [None]
  - Pelvic inflammatory disease [None]
  - Anxiety [None]
  - Vaginal infection [None]
  - Device dislocation [None]
  - Injury [None]
  - General physical health deterioration [None]
  - Vaginal infection [None]
  - Device issue [None]
  - Device issue [None]
  - Cystitis [None]
  - Cystitis [None]
  - Uterine pain [None]
  - Device dislocation [None]
  - Anhedonia [None]
  - Device difficult to use [None]
  - Pelvic pain [None]
  - Pelvic infection [None]

NARRATIVE: CASE EVENT DATE: 2008
